FAERS Safety Report 6570711-0 (Version None)
Quarter: 2010Q1

REPORT INFORMATION
  Report Type: 
  Country: None (occurrence: None)
  Receive Date: 20100204
  Receipt Date: 20100127
  Transmission Date: 20100710
  Serious: Yes (Other)
  Sender: FDA-Public Use
  Company Number: B0605464A

PATIENT
  Sex: Female

DRUGS (18)
  1. PAXIL [Suspect]
     Indication: DEPRESSION
     Route: 048
     Dates: start: 20090821, end: 20091127
  2. RISPERDAL [Suspect]
     Indication: DRUG USE FOR UNKNOWN INDICATION
     Route: 065
  3. DIGOXIN [Concomitant]
     Indication: CARDIAC FAILURE
     Route: 048
     Dates: end: 20091108
  4. OLMETEC [Concomitant]
     Route: 048
  5. SUNRYTHM [Concomitant]
     Route: 065
  6. BASEN [Concomitant]
     Route: 048
  7. ARTIST [Concomitant]
     Route: 048
  8. TANATRIL [Concomitant]
     Route: 048
  9. PLAVIX [Concomitant]
     Route: 048
  10. PLETAL [Concomitant]
     Route: 048
  11. DIHYDROERGOTAMINE MESYLATE [Concomitant]
     Route: 048
  12. GASTER [Concomitant]
     Route: 048
  13. METHYCOBAL [Concomitant]
     Route: 065
  14. ASPARA K [Concomitant]
     Route: 048
  15. BENECID [Concomitant]
     Route: 048
     Dates: start: 20091117
  16. UNKNOWN DRUG [Concomitant]
     Route: 062
  17. DIGOXIN [Concomitant]
     Dosage: .125MG PER DAY
     Route: 048
     Dates: start: 20091109, end: 20100126
  18. DIGOXIN [Concomitant]
     Dosage: .0625MG PER DAY
     Route: 048
     Dates: start: 20100127

REACTIONS (4)
  - AGGRESSION [None]
  - BLOOD POTASSIUM DECREASED [None]
  - DRUG WITHDRAWAL SYNDROME [None]
  - TREMOR [None]
